FAERS Safety Report 5309048-6 (Version None)
Quarter: 2007Q2

REPORT INFORMATION
  Report Type: 
  Country: None (occurrence: None)
  Receive Date: 20070420
  Receipt Date: 20070413
  Transmission Date: 20071010
  Serious: Yes (Death, Other)
  Sender: FDA-Public Use
  Company Number: 009-C5013-06010447

PATIENT
  Age: 77 Year
  Sex: Male
  Weight: 66 kg

DRUGS (3)
  1. CC-5013 (LENALIDOMIDE) (CAPSULE) [Suspect]
     Indication: MULTIPLE MYELOMA
     Dosage: 25 MG, D1-21, ORAL
     Route: 048
     Dates: end: 20060110
  2. PLACEBO OR CC-5013 (LENALIDOMIDE) (CAPSULES) [Suspect]
     Indication: MULTIPLE MYELOMA
     Dosage: 25 MG, D1-21, ORAL
     Route: 048
     Dates: start: 20040804
  3. DEXAMETHASONE TAB [Suspect]
     Indication: MULTIPLE MYELOMA
     Dosage: 40 MG, D1-4, ORAL
     Route: 048
     Dates: start: 20040804, end: 20060110

REACTIONS (8)
  - CONDITION AGGRAVATED [None]
  - ENTEROVESICAL FISTULA [None]
  - HYPERGLYCAEMIA [None]
  - NECROSIS [None]
  - SCROTAL DISORDER [None]
  - SKIN NECROSIS [None]
  - URINARY TRACT INFECTION [None]
  - UROSEPSIS [None]
